FAERS Safety Report 13972145 (Version 1)
Quarter: 2017Q3

REPORT INFORMATION
  Report Type: Spontaneous
  Country: US (occurrence: US)
  Receive Date: 20170914
  Receipt Date: 20170914
  Transmission Date: 20171128
  Serious: Yes (Other)
  Sender: FDA-Public Use
  Company Number: US-ASTELLAS-2016US044769

PATIENT
  Age: 80 Year
  Sex: Male

DRUGS (2)
  1. XTANDI [Suspect]
     Active Substance: ENZALUTAMIDE
     Route: 048
  2. XTANDI [Suspect]
     Active Substance: ENZALUTAMIDE
     Indication: PROSTATE CANCER METASTATIC
     Route: 065
     Dates: start: 201610

REACTIONS (11)
  - Fatigue [Unknown]
  - Fall [Unknown]
  - Femur fracture [Unknown]
  - Constipation [Unknown]
  - Hip fracture [Unknown]
  - Amnesia [Recovered/Resolved]
  - Mental disorder [Unknown]
  - Hot flush [Unknown]
  - Anxiety [Unknown]
  - Blood urine present [Unknown]
  - Asthenia [Unknown]

NARRATIVE: CASE EVENT DATE: 20161105
